FAERS Safety Report 6663030-5 (Version None)
Quarter: 2010Q2

REPORT INFORMATION
  Report Type: 
  Country: None (occurrence: None)
  Receive Date: 20100401
  Receipt Date: 20100318
  Transmission Date: 20101027
  Serious: Yes (Hospitalization)
  Sender: FDA-Public Use
  Company Number: US-ELI_LILLY_AND_COMPANY-US201003007638

PATIENT
  Sex: Female

DRUGS (3)
  1. FORTEO [Suspect]
     Indication: OSTEOPOROSIS
     Dosage: 20 UG, DAILY (1/D)
     Dates: start: 20090101
  2. VITAMIN D [Concomitant]
     Dosage: 50000 UNK, 2/W
  3. CALCIUM [Concomitant]

REACTIONS (2)
  - BONE DENSITY DECREASED [None]
  - HIP ARTHROPLASTY [None]
